FAERS Safety Report 8298121-9 (Version None)
Quarter: 2012Q2

REPORT INFORMATION
  Report Type: 
  Country: None (occurrence: None)
  Receive Date: 20120419
  Receipt Date: 20120413
  Transmission Date: 20120825
  Serious: Yes (Other)
  Sender: FDA-Public Use
  Company Number: BR-SANOFI-AVENTIS-2009SA011783

PATIENT
  Age: 56 Year
  Sex: Female
  Weight: 44 kg

DRUGS (12)
  1. LOSARTAN POTASSIUM [Concomitant]
     Indication: BLOOD PRESSURE
     Dosage: 1 TABLET IN MORNING AND 1 TABLET AT NIGHT
     Route: 048
  2. BISOPROLOL FUMARATE [Concomitant]
     Indication: BLOOD PRESSURE
     Dosage: 1 TABLET IN MORNING AND 1 TABLET AT NIGHT
     Route: 048
  3. SIMVASTATIN [Concomitant]
     Dosage: 1 TABLET AFTER DINNER
     Route: 048
  4. OPTIPEN [Suspect]
     Indication: DEVICE THERAPY
     Dates: start: 20060101
  5. NOVORAPID [Concomitant]
     Route: 058
     Dates: start: 20060101
  6. ATENOLOL [Concomitant]
     Indication: BLOOD PRESSURE
     Route: 048
  7. SOMALGIN [Concomitant]
     Dosage: 1 TABLET AFTER LUNCH
     Route: 048
  8. CILOSTAZOL [Concomitant]
     Indication: BLOOD PRESSURE
     Dosage: 1 TABLET IN MORNING AND 1 TABLET AT NIGHT
     Route: 048
  9. LANTUS [Suspect]
     Indication: TYPE 2 DIABETES MELLITUS
     Dosage: CARTRIDGE
     Route: 058
     Dates: start: 20060101
  10. FLUOXETINE [Concomitant]
     Indication: ANXIETY
     Dosage: 1 TABLET AFTER BREAKFAST
     Route: 048
  11. CLONIDINE HYDROCHLORIDE [Concomitant]
     Indication: BLOOD PRESSURE
     Route: 048
  12. MINIPRESS [Concomitant]
     Indication: BLOOD PRESSURE
     Route: 048

REACTIONS (16)
  - ADVERSE REACTION [None]
  - RETINOPATHY [None]
  - ASTHENIA [None]
  - THIRST [None]
  - SOMNOLENCE [None]
  - HYPERGLYCAEMIA [None]
  - RENAL FAILURE [None]
  - GENERAL PHYSICAL HEALTH DETERIORATION [None]
  - HYPOGLYCAEMIA [None]
  - HYPERHIDROSIS [None]
  - VISUAL IMPAIRMENT [None]
  - ISCHAEMIA [None]
  - FEELING COLD [None]
  - FEELING ABNORMAL [None]
  - GAIT DISTURBANCE [None]
  - ABASIA [None]
